FAERS Safety Report 10144940 (Version 1)
Quarter: 2014Q2

REPORT INFORMATION
  Report Type: Spontaneous
  Country: US (occurrence: US)
  Receive Date: 20140430
  Receipt Date: 20140430
  Transmission Date: 20141212
  Serious: No
  Sender: FDA-Public Use
  Company Number: US-SA-2014SA037387

PATIENT
  Age: 86 Year
  Sex: Female

DRUGS (19)
  1. DEMEROL [Suspect]
     Indication: PRODUCT USED FOR UNKNOWN INDICATION
     Route: 065
  2. FORTEO [Concomitant]
     Dosage: SUB-Q PEN INJECTOR, IN THIGH OR ABDOMINAL WALL
     Route: 058
     Dates: start: 20130920
  3. CALCIUM [Concomitant]
     Route: 048
     Dates: start: 20130920
  4. RANITIDINE [Concomitant]
     Route: 048
     Dates: start: 20130920
  5. COSOPT [Concomitant]
     Dates: start: 20130920
  6. VESICARE [Concomitant]
     Route: 048
     Dates: start: 20130920
  7. SERTRALINE [Concomitant]
     Route: 048
     Dates: start: 20130920
  8. ASPIRIN [Concomitant]
     Route: 048
     Dates: start: 20130920
  9. CADUET [Concomitant]
     Route: 048
     Dates: start: 20130920
  10. HYDROCORTISONE [Concomitant]
     Dosage: 2TIMES EVERY DAY TO THE EFFECTED AREAS
     Route: 061
     Dates: start: 20130920
  11. KETOCONAZOLE [Concomitant]
     Dosage: APPLY BY TOPICAL ROUTE EVERY DAY TO THE EFFECTED AREAS
     Route: 061
     Dates: start: 20130920
  12. TRAMADOL [Concomitant]
     Route: 048
     Dates: start: 20130920
  13. GLYCERYL TRINITRATE [Concomitant]
     Indication: CHEST PAIN
     Dosage: 1 SUBLINGUAL TABLET EVERY 5 MIN
     Dates: start: 20130920
  14. LUMIGAN [Concomitant]
     Dosage: 1 GTT IN BOTH EYES
     Route: 031
     Dates: start: 20130920
  15. COUMADIN [Concomitant]
     Dates: start: 20130920
  16. CENTRUM SILVER [Concomitant]
     Route: 048
     Dates: start: 20130920
  17. STOOL SOFTENER [Concomitant]
     Route: 048
     Dates: start: 20130920
  18. PRILOSEC [Concomitant]
     Route: 048
     Dates: start: 20130920
  19. COZAAR [Concomitant]
     Route: 048
     Dates: start: 20130920

REACTIONS (1)
  - Hypersensitivity [Unknown]
